FAERS Safety Report 6664356-1 (Version None)
Quarter: 2010Q2

REPORT INFORMATION
  Report Type: 
  Country: None (occurrence: None)
  Receive Date: 20100401
  Receipt Date: 20100325
  Transmission Date: 20101027
  Serious: Yes (Hospitalization)
  Sender: FDA-Public Use
  Company Number: PHHO2010HU04687

PATIENT
  Sex: Female
  Weight: 53 kg

DRUGS (1)
  1. AFINITOR [Suspect]
     Indication: METASTATIC RENAL CELL CARCINOMA
     Dosage: 10 MG / DAY
     Route: 048
     Dates: start: 20091123, end: 20100323

REACTIONS (2)
  - AZOTAEMIA [None]
  - BLOOD CREATININE INCREASED [None]
